FAERS Safety Report 5015628-8 (Version None)
Quarter: 2006Q2

REPORT INFORMATION
  Report Type: 
  Country: None (occurrence: None)
  Receive Date: 20060601
  Receipt Date: 20060523
  Transmission Date: 20061013
  Serious: Yes (Hospitalization)
  Sender: FDA-Public Use
  Company Number: US-SANOFI-SYNTHELABO-A03200603297

PATIENT
  Sex: Male
  Weight: 122.7 kg

DRUGS (11)
  1. ELOXATIN [Suspect]
     Indication: COLON CANCER METASTATIC
     Route: 042
     Dates: start: 20060412, end: 20060412
  2. CALCIUM GLUCONATE [Concomitant]
     Dosage: UNK
     Route: 042
     Dates: start: 20060301, end: 20060412
  3. LEXAPRO [Concomitant]
     Dosage: UNK
     Route: 048
  4. QUESTRAN [Concomitant]
     Dosage: UNK
     Route: 048
  5. COMPAZINE [Concomitant]
     Dosage: UNK
     Route: 065
  6. WARFARIN [Concomitant]
     Dosage: UNK
     Route: 048
  7. HYDROCODONE [Concomitant]
     Dosage: UNK
     Route: 048
  8. TOPROL-XL [Concomitant]
     Dosage: UNK
     Route: 048
  9. AVASTIN [Concomitant]
     Route: 042
     Dates: start: 20060301, end: 20060412
  10. FLUOROURACIL [Concomitant]
     Dosage: BOLUS OF 950 MG AND CONTINUOUS INFUSION OF 1450 MG FOR 22 HOUR ON DAYS 1 AND 2
     Route: 042
     Dates: start: 20060301, end: 20060412
  11. LEUCOVORIN [Concomitant]
     Route: 042
     Dates: start: 20060301, end: 20060412

REACTIONS (7)
  - ASCITES [None]
  - BLOOD POTASSIUM DECREASED [None]
  - COAGULOPATHY [None]
  - COLITIS [None]
  - DIARRHOEA [None]
  - ENCEPHALOPATHY [None]
  - PLEURAL EFFUSION [None]
